FAERS Safety Report 9664331 (Version 1)
Quarter: 2013Q4

REPORT INFORMATION
  Report Type: Spontaneous
  Country: US (occurrence: US)
  Receive Date: 20131101
  Receipt Date: 20131101
  Transmission Date: 20140711
  Serious: Yes (Death)
  Sender: FDA-Public Use
  Company Number: US-MYLANLABS-2013S1018242

PATIENT
  Age: 3 Decade
  Sex: Female
  Weight: 45.36 kg

DRUGS (1)
  1. FENTANYL TRANSDERMAL SYSTEM [Suspect]

REACTIONS (2)
  - Drug abuse [Fatal]
  - Drug diversion [Fatal]
